FAERS Safety Report 8563537-X (Version None)
Quarter: 2012Q3

REPORT INFORMATION
  Report Type: 
  Country: None (occurrence: None)
  Receive Date: 20120802
  Receipt Date: 20120723
  Transmission Date: 20120928
  Serious: Yes (Death)
  Sender: FDA-Public Use
  Company Number: TR-BRISTOL-MYERS SQUIBB COMPANY-16795320

PATIENT
  Age: 48 Year
  Sex: Female

DRUGS (1)
  1. HYDROXYUREA [Suspect]
     Indication: THROMBOCYTOSIS
     Dates: start: 20000901

REACTIONS (1)
  - MULTIPLE MYELOMA [None]
